FAERS Safety Report 6910562-8 (Version None)
Quarter: 2010Q3

REPORT INFORMATION
  Report Type: 
  Country: None (occurrence: None)
  Receive Date: 20100806
  Receipt Date: 20100726
  Transmission Date: 20110219
  Serious: Yes (Other)
  Sender: FDA-Public Use
  Company Number: US-PFIZER INC-2010094316

PATIENT
  Sex: Female
  Weight: 78.912 kg

DRUGS (12)
  1. LYRICA [Suspect]
     Indication: FIBROMYALGIA
     Dosage: 50 MG, 1X/DAY
     Route: 048
     Dates: start: 20100501, end: 20100101
  2. METHYLPREDNISOLONE [Suspect]
     Indication: RASH
     Dosage: 1 MG, 1X/DAY
     Route: 048
     Dates: start: 20100527, end: 20100101
  3. CYMBALTA [Suspect]
     Indication: PAIN
     Dosage: 60 MG IN MORNING AND 30MG AT NIGHT
     Route: 048
  4. CYMBALTA [Suspect]
     Indication: DEPRESSION
  5. XANAX [Concomitant]
     Indication: ANXIETY DISORDER
     Dosage: 1 MG, UNK
     Route: 048
  6. PERCODAN-DEMI [Concomitant]
     Indication: MIGRAINE
     Dosage: UNK
     Route: 048
  7. FLEXERIL [Concomitant]
     Dosage: 10 MG, UNK
     Route: 048
  8. QUINAPRIL [Concomitant]
     Indication: MIGRAINE
     Dosage: UNK
     Route: 048
  9. PHRENILIN [Concomitant]
     Dosage: UNK
  10. LEVOXYL [Concomitant]
     Indication: THYROID DISORDER
     Dosage: 100 UG, UNK
     Route: 048
  11. KLONOPIN [Concomitant]
     Indication: ANXIETY
     Dosage: UNK
  12. MORPHINE [Concomitant]
     Indication: NEPHROLITHIASIS
     Dosage: 15 MG, 2X/DAY
     Route: 048

REACTIONS (12)
  - BLOOD URINE PRESENT [None]
  - DERMATITIS BULLOUS [None]
  - DIPLOPIA [None]
  - HOT FLUSH [None]
  - MUSCULOSKELETAL STIFFNESS [None]
  - PYREXIA [None]
  - RASH [None]
  - SOMNOLENCE [None]
  - SUNBURN [None]
  - SWELLING [None]
  - WEIGHT INCREASED [None]
  - WHITE BLOOD CELL COUNT INCREASED [None]
